FAERS Safety Report 24113947 (Version 1)
Quarter: 2024Q3

REPORT INFORMATION
  Report Type: Spontaneous
  Country: GB (occurrence: GB)
  Receive Date: 20240720
  Receipt Date: 20240720
  Transmission Date: 20241017
  Serious: Yes (Other)
  Sender: AUROBINDO
  Company Number: GB-MHRA-MED-202407111754064160-BNWVQ

PATIENT
  Sex: Female

DRUGS (1)
  1. MIRTAZAPINE [Suspect]
     Active Substance: MIRTAZAPINE
     Indication: Product used for unknown indication
     Dosage: 30 MILLIGRAM, AT BED TIME
     Route: 065
     Dates: start: 20230926

REACTIONS (1)
  - Amenorrhoea [Not Recovered/Not Resolved]

NARRATIVE: CASE EVENT DATE: 20230926
